FAERS Safety Report 17267772 (Version 1)
Quarter: 2019Q4

REPORT INFORMATION
  Report Type: Spontaneous
  Country: US (occurrence: US)
  Receive Date: 20191220
  Receipt Date: 20191220
  Transmission Date: 20200122
  Serious: Yes (Hospitalization)
  Sender: FDA-Public Use
  Company Number: None

PATIENT
  Age: 49 Year
  Sex: Female

DRUGS (7)
  1. TASIGNA [Suspect]
     Active Substance: NILOTINIB
     Indication: ACUTE LYMPHOCYTIC LEUKAEMIA
     Route: 048
  2. ENOXAPARIN [Concomitant]
     Active Substance: ENOXAPARIN
  3. GUAIFENESIN. [Concomitant]
     Active Substance: GUAIFENESIN
  4. ALLOPURINOL. [Concomitant]
     Active Substance: ALLOPURINOL
  5. ACYCLOVIR. [Concomitant]
     Active Substance: ACYCLOVIR
  6. SULFAMETHOXAZOLE/TRIMETHOPRIM [Concomitant]
     Active Substance: SULFAMETHOXAZOLE\TRIMETHOPRIM
  7. DASATINIB. [Concomitant]
     Active Substance: DASATINIB

REACTIONS (2)
  - Chest pain [None]
  - Pericardial effusion [None]

NARRATIVE: CASE EVENT DATE: 20191219
